FAERS Safety Report 5110560-3 (Version None)
Quarter: 2006Q3

REPORT INFORMATION
  Report Type: 
  Country: None (occurrence: None)
  Receive Date: 20060915
  Receipt Date: 20060905
  Transmission Date: 20061208
  Serious: Yes (Other)
  Sender: FDA-Public Use
  Company Number: HQWYE197516JUL04

PATIENT
  Age: 59 Year
  Sex: Female
  Weight: 83.99 kg

DRUGS (2)
  1. PREMPRO [Suspect]
     Indication: HORMONE REPLACEMENT THERAPY
     Dosage: ORAL
     Route: 048
     Dates: start: 19950101, end: 19960101
  2. PREMPRO [Suspect]
     Indication: HOT FLUSH
     Dosage: ORAL
     Route: 048
     Dates: start: 19950101, end: 19960101

REACTIONS (5)
  - BREAST CANCER METASTATIC [None]
  - BREAST CANCER RECURRENT [None]
  - METASTASES TO LYMPH NODES [None]
  - RENAL CELL CARCINOMA RECURRENT [None]
  - SCAR [None]
